FAERS Safety Report 7607659-6 (Version None)
Quarter: 2011Q3

REPORT INFORMATION
  Report Type: 
  Country: None (occurrence: None)
  Receive Date: 20110713
  Receipt Date: 20110420
  Transmission Date: 20111222
  Serious: Yes (Hospitalization)
  Sender: FDA-Public Use
  Company Number: PHHY2011DK33570

PATIENT

DRUGS (1)
  1. EXJADE [Suspect]
     Dosage: 1500 MG, UNK
     Route: 048
     Dates: start: 20070721

REACTIONS (3)
  - BONE FISSURE [None]
  - SWELLING [None]
  - BONE PAIN [None]
